FAERS Safety Report 5413102-8 (Version None)
Quarter: 2007Q3

REPORT INFORMATION
  Report Type: 
  Country: None (occurrence: None)
  Receive Date: 20070809
  Receipt Date: 20070727
  Transmission Date: 20080115
  Serious: Yes (Hospitalization)
  Sender: FDA-Public Use
  Company Number: 2007RL000330

PATIENT
  Age: 79 Year
  Sex: 0
  Weight: 78 kg

DRUGS (8)
  1. PROPAFENONE HCL [Suspect]
     Indication: ATRIAL FIBRILLATION
     Dosage: 300MG;BID;PO
     Route: 048
     Dates: start: 20070224
  2. VERAPAMIL HYDROCHLORIDE [Concomitant]
  3. GODASAL [Concomitant]
  4. ISOSORBIDE MONONITRATE [Concomitant]
  5. CAPIVEN [Concomitant]
  6. AMPRILAN [Concomitant]
  7. THEOPHYLLINE [Concomitant]
  8. CARBIMAZOLE [Concomitant]

REACTIONS (6)
  - ANOREXIA [None]
  - CHOLESTASIS [None]
  - HEPATIC ENZYME INCREASED [None]
  - HEPATOMEGALY [None]
  - UNEVALUABLE EVENT [None]
  - WEIGHT DECREASED [None]
